FAERS Safety Report 15991322 (Version 4)
Quarter: 2019Q1

REPORT INFORMATION
  Report Type: Report from Study
  Country: US (occurrence: US)
  Receive Date: 20190221
  Receipt Date: 20190325
  Transmission Date: 20190418
  Serious: Yes (Hospitalization)
  Sender: FDA-Public Use
  Company Number: US-JNJFOC-20190203159

PATIENT
  Age: 76 Year
  Sex: Male

DRUGS (4)
  1. IMBRUVICA [Suspect]
     Active Substance: IBRUTINIB
     Indication: CHRONIC LYMPHOCYTIC LEUKAEMIA
     Route: 048
     Dates: start: 20190108
  2. IMBRUVICA [Suspect]
     Active Substance: IBRUTINIB
     Indication: CHRONIC LYMPHOCYTIC LEUKAEMIA
     Route: 048
     Dates: start: 20190208
  3. IMBRUVICA [Suspect]
     Active Substance: IBRUTINIB
     Indication: CHRONIC LYMPHOCYTIC LEUKAEMIA
     Route: 048
     Dates: start: 20190203, end: 20190208
  4. INMUNOGLOBULIN G [Suspect]
     Active Substance: HUMAN IMMUNOGLOBULIN G
     Indication: PRODUCT USED FOR UNKNOWN INDICATION
     Route: 065
     Dates: start: 20190204

REACTIONS (14)
  - Laboratory test abnormal [Unknown]
  - Cough [Unknown]
  - Rash [Unknown]
  - Weight increased [Unknown]
  - Clostridium difficile infection [Unknown]
  - Skin tightness [Unknown]
  - Staphylococcal infection [Not Recovered/Not Resolved]
  - Oedema peripheral [Unknown]
  - Fluid retention [Unknown]
  - Cystitis [Not Recovered/Not Resolved]
  - Incorrect dose administered [Unknown]
  - Hypersomnia [Not Recovered/Not Resolved]
  - Urinary tract infection staphylococcal [Not Recovered/Not Resolved]
  - Off label use [Unknown]

NARRATIVE: CASE EVENT DATE: 20190108
